FAERS Safety Report 25282683 (Version 2)
Quarter: 2025Q2

REPORT INFORMATION
  Report Type: Spontaneous
  Country: US (occurrence: US)
  Receive Date: 20250508
  Receipt Date: 20250528
  Transmission Date: 20250717
  Serious: No
  Sender: GLAXOSMITHKLINE
  Company Number: US-GSK-US2025AMR054434

PATIENT

DRUGS (2)
  1. NUCALA [Suspect]
     Active Substance: MEPOLIZUMAB
     Indication: Anxiety disorder
  2. NUCALA [Suspect]
     Active Substance: MEPOLIZUMAB
     Indication: Arthritis

REACTIONS (1)
  - Off label use [Unknown]
